FAERS Safety Report 6415827-4 (Version None)
Quarter: 2009Q4

REPORT INFORMATION
  Report Type: 
  Country: None (occurrence: None)
  Receive Date: 20091023
  Receipt Date: 20091012
  Transmission Date: 20100525
  Serious: Yes (Life-Threatening, Hospitalization, Other)
  Sender: FDA-Public Use
  Company Number: UTC-000669

PATIENT
  Age: 66 Year
  Sex: Female
  Weight: 60.4 kg

DRUGS (12)
  1. REMODULIN [Suspect]
     Indication: PULMONARY ARTERIAL HYPERTENSION
     Dosage: 0.00625 UG/KG, 1 IN 1 MIN); INTRAVENOUS, 0.005 UG/KG, 1 IN 1 MIN); INTRAVENOUS
     Route: 042
     Dates: start: 20090909, end: 20091010
  2. REMODULIN [Suspect]
     Indication: PULMONARY ARTERIAL HYPERTENSION
     Dosage: 0.00625 UG/KG, 1 IN 1 MIN); INTRAVENOUS, 0.005 UG/KG, 1 IN 1 MIN); INTRAVENOUS
     Route: 042
     Dates: start: 20091011, end: 20091012
  3. COUMADIN [Concomitant]
  4. REVATIO [Concomitant]
  5. LETAIRIS (AMBRISENTAN) [Concomitant]
  6. DIGOXIN [Concomitant]
  7. ALDACTONE [Concomitant]
  8. ALLOPURINOL [Concomitant]
  9. ASPIRIN [Concomitant]
  10. LASIX [Concomitant]
  11. OXYGEN (OXYGEN) [Concomitant]
  12. POTASSIUM (POTASSIUM) [Concomitant]

REACTIONS (16)
  - ALANINE AMINOTRANSFERASE INCREASED [None]
  - ASPARTATE AMINOTRANSFERASE INCREASED [None]
  - BACTERAEMIA [None]
  - BLOOD ALKALINE PHOSPHATASE INCREASED [None]
  - BLOOD CULTURE POSITIVE [None]
  - BRAIN HERNIATION [None]
  - CULTURE URINE POSITIVE [None]
  - DIZZINESS [None]
  - DYSSTASIA [None]
  - ESCHERICHIA INFECTION [None]
  - FALL [None]
  - HAEMORRHAGE INTRACRANIAL [None]
  - HEADACHE [None]
  - PROTHROMBIN TIME PROLONGED [None]
  - STAPHYLOCOCCAL INFECTION [None]
  - SUBDURAL HAEMATOMA [None]
